FAERS Safety Report 24575941 (Version 1)
Quarter: 2024Q4

REPORT INFORMATION
  Report Type: Spontaneous
  Country: US (occurrence: None)
  Receive Date: 20241101
  Receipt Date: 20241101
  Transmission Date: 20250115
  Serious: Yes (Death)
  Sender: Public
  Company Number: None

PATIENT
  Age: 19 Year
  Sex: Male

DRUGS (1)
  1. UDENYCA [Suspect]
     Active Substance: PEGFILGRASTIM-CBQV
     Dosage: 6/0.6 MG/ML Q 2 WEEKS SUBCUTANEOUS
     Route: 058
     Dates: start: 20241010, end: 20241019

REACTIONS (1)
  - Death [None]

NARRATIVE: CASE EVENT DATE: 20241019
